FAERS Safety Report 4716490-0 (Version None)
Quarter: 2005Q3

REPORT INFORMATION
  Report Type: 
  Country: None (occurrence: None)
  Receive Date: 20050714
  Receipt Date: 20050630
  Transmission Date: 20060218
  Serious: Yes (Other)
  Sender: FDA-Public Use
  Company Number: 2005094722

PATIENT
  Age: 68 Year
  Sex: Female

DRUGS (3)
  1. AROMASIN [Suspect]
     Indication: BREAST CANCER
     Dosage: ORAL
     Route: 048
     Dates: start: 20050622
  2. NORVASC [Concomitant]
  3. FAMOTIDINE [Concomitant]

REACTIONS (4)
  - BRONCHITIS [None]
  - HAEMOPTYSIS [None]
  - HAEMORRHAGE [None]
  - MALAISE [None]
